FAERS Safety Report 13386198 (Version 1)
Quarter: 2017Q1

REPORT INFORMATION
  Report Type: Spontaneous
  Country: US (occurrence: US)
  Receive Date: 20170330
  Receipt Date: 20170330
  Transmission Date: 20170429
  Serious: No
  Sender: FDA-Public Use
  Company Number: US-AUROBINDO-AUR-APU-2016-05284

PATIENT
  Sex: Female

DRUGS (2)
  1. DOXYCYCLINE. [Concomitant]
     Active Substance: DOXYCYCLINE
     Indication: PRODUCT USED FOR UNKNOWN INDICATION
     Route: 065
  2. GABAPENTIN CAPSULES 100 MG [Suspect]
     Active Substance: GABAPENTIN
     Indication: WOUND HEALING NORMAL
     Dosage: ONE CAPSULE A DAY FIRST WEEK AND TWO CAPSULES A DAY FOR SECOND WEEK
     Route: 065
     Dates: start: 20160405, end: 20160418

REACTIONS (1)
  - Drug ineffective [Not Recovered/Not Resolved]
